FAERS Safety Report 8915816 (Version 2)
Quarter: 2013Q1

REPORT INFORMATION
  Report Type: Spontaneous
  Country: US (occurrence: US)
  Receive Date: 20121119
  Receipt Date: 20130108
  Transmission Date: 20140127
  Serious: No
  Sender: FDA-Public Use
  Company Number: US-ASTRAZENECA-2012SE84364

PATIENT
  Age: 909 Month
  Sex: Female

DRUGS (1)
  1. SYMBICORT PMDI [Suspect]
     Dosage: DOSE, FREQUENCY UNKNOWN
     Route: 055

REACTIONS (6)
  - Asthma [Unknown]
  - Nervous system disorder [Unknown]
  - Herpes zoster [Unknown]
  - Burning sensation [Unknown]
  - Cough [Unknown]
  - Tremor [Unknown]
